FAERS Safety Report 5509829-X (Version None)
Quarter: 2007Q4

REPORT INFORMATION
  Report Type: 
  Country: None (occurrence: None)
  Receive Date: 20071026
  Receipt Date: 20070914
  Transmission Date: 20080405
  Serious: Yes (Hospitalization)
  Sender: FDA-Public Use
  Company Number: CLOF-10665

PATIENT
  Age: 50 Year
  Sex: Male

DRUGS (27)
  1. CLOFARABINE. MFR: GENZYME [Suspect]
     Indication: ACUTE MYELOID LEUKAEMIA
     Dosage: 22.5 MG/M2 QD X 5 IV
     Route: 042
     Dates: start: 20070811, end: 20070815
  2. IDARUBICIN HCL [Suspect]
     Indication: ACUTE MYELOID LEUKAEMIA
     Dosage: 6 MG/M2 QD X 3 IV
     Route: 042
     Dates: start: 20070810, end: 20070812
  3. CYTARABINE [Suspect]
     Indication: ACUTE MYELOID LEUKAEMIA
     Dosage: 750 MG/M2 QD X 5 IV
     Route: 042
     Dates: start: 20070810, end: 20070814
  4. PANTOPRAZOLE SODIUM [Concomitant]
  5. JANUMET [Concomitant]
  6. METOPROLOL [Concomitant]
  7. INSULIN ISOPHANE [Concomitant]
  8. ENALAPRIL [Concomitant]
  9. CLOTRIMAZOLE [Concomitant]
  10. TYLENOL (CAPLET) [Concomitant]
  11. FENTANYL [Concomitant]
  12. FLUCONAZOLE [Concomitant]
  13. HYDRALAZINE [Concomitant]
  14. DAPTOMYCIN [Concomitant]
  15. SENOKOT [Concomitant]
  16. INSULIN [Concomitant]
  17. MEROPENEM [Concomitant]
  18. VALACYCLOVIR [Concomitant]
  19. ZOFRAN [Concomitant]
  20. LORAZEPAM [Concomitant]
  21. VITAMIN CAP [Concomitant]
  22. GABAPENTIN [Concomitant]
  23. PREGABALIN [Concomitant]
  24. BENADRYL [Concomitant]
  25. PROPOXYPHENE HYDROCHLORIDE [Concomitant]
  26. TEMAZEPAM [Concomitant]
  27. PHENERGAN HCL [Concomitant]

REACTIONS (1)
  - SUBCUTANEOUS ABSCESS [None]
